FAERS Safety Report 8506515-9 (Version None)
Quarter: 2012Q3

REPORT INFORMATION
  Report Type: 
  Country: None (occurrence: None)
  Receive Date: 20120712
  Receipt Date: 20120427
  Transmission Date: 20120928
  Serious: No
  Sender: FDA-Public Use
  Company Number: US-GLAXOSMITHKLINE-A0957991A

PATIENT
  Age: 52 Year
  Sex: Male

DRUGS (3)
  1. JALYN [Suspect]
     Indication: URINARY INCONTINENCE
     Dosage: .5MG SINGLE DOSE
     Route: 048
     Dates: start: 20111213, end: 20111213
  2. METFORMIN HCL [Concomitant]
  3. BACTRIM [Suspect]
     Indication: PRODUCT USED FOR UNKNOWN INDICATION
     Route: 048

REACTIONS (5)
  - SINUS OPERATION [None]
  - RESPIRATORY TRACT CONGESTION [None]
  - DRUG HYPERSENSITIVITY [None]
  - PHARYNGEAL OEDEMA [None]
  - TIC [None]
